FAERS Safety Report 7167245-1 (Version None)
Quarter: 2010Q4

REPORT INFORMATION
  Report Type: 
  Country: None (occurrence: None)
  Receive Date: 20101213
  Receipt Date: 20101213
  Transmission Date: 20110411
  Serious: Yes (Life-Threatening, Hospitalization)
  Sender: FDA-Public Use
  Company Number: None

PATIENT
  Sex: Female
  Weight: 86.4 kg

DRUGS (2)
  1. TIKOSYN [Suspect]
     Indication: ATRIAL FIBRILLATION
     Dosage: 500 MCG (0.5MG) EVERY 12 HOURS BY MOUTH
     Route: 048
     Dates: start: 20101116, end: 20101117
  2. TIKOSYN [Suspect]
     Indication: ATRIAL FIBRILLATION
     Dosage: 250MCG (0.25MG) EVERY 12 HOURS BY MOUTH
     Route: 048
     Dates: start: 20101117, end: 20101127

REACTIONS (4)
  - DIZZINESS [None]
  - ELECTROCARDIOGRAM QRS COMPLEX ABNORMAL [None]
  - EXTRASYSTOLES [None]
  - VENTRICULAR FIBRILLATION [None]
